FAERS Safety Report 9848786 (Version 1)
Quarter: 2014Q1

REPORT INFORMATION
  Report Type: Spontaneous
  Country: US (occurrence: None)
  Receive Date: 20140124
  Receipt Date: 20140124
  Transmission Date: 20141002
  Serious: Yes (Life-Threatening, Hospitalization)
  Sender: FDA-Public Use
  Company Number: None

PATIENT
  Age: 82 Year
  Sex: Male
  Weight: 76.4 kg

DRUGS (1)
  1. WARFARIN [Suspect]
     Indication: PULMONARY EMBOLISM
     Route: 048
     Dates: start: 20130827, end: 20131016

REACTIONS (6)
  - International normalised ratio increased [None]
  - Fall [None]
  - Contusion [None]
  - Subdural haematoma [None]
  - Head injury [None]
  - Haemorrhage intracranial [None]
